FAERS Safety Report 5718247-0 (Version None)
Quarter: 2008Q2

REPORT INFORMATION
  Report Type: 
  Country: None (occurrence: None)
  Receive Date: 20080425
  Receipt Date: 20080416
  Transmission Date: 20081010
  Serious: Yes (Other)
  Sender: FDA-Public Use
  Company Number: GR-WYE-H03666208

PATIENT
  Sex: Female

DRUGS (1)
  1. CONTROLOC [Suspect]
     Dosage: 40 MG, FREQUENCY UNKNOWN
     Route: 048
     Dates: start: 20080301, end: 20080301

REACTIONS (2)
  - HEMIANOPIA [None]
  - HYPERTENSION [None]
